FAERS Safety Report 8274387-6 (Version None)
Quarter: 2012Q2

REPORT INFORMATION
  Report Type: 
  Country: None (occurrence: None)
  Receive Date: 20120411
  Receipt Date: 20120405
  Transmission Date: 20120825
  Serious: Yes (Other)
  Sender: FDA-Public Use
  Company Number: CN-US-EMD SERONO, INC.-7120761

PATIENT
  Sex: Female
  Weight: 50 kg

DRUGS (2)
  1. LUVERIS [Suspect]
     Indication: IN VITRO FERTILISATION
     Route: 058
     Dates: start: 20101201, end: 20101208
  2. GONAL-F [Suspect]
     Indication: IN VITRO FERTILISATION
     Route: 058
     Dates: start: 20101127, end: 20101208

REACTIONS (2)
  - MATERNAL EXPOSURE DURING PREGNANCY [None]
  - STILLBIRTH [None]
